FAERS Safety Report 6956889-5 (Version None)
Quarter: 2010Q3

REPORT INFORMATION
  Report Type: 
  Country: None (occurrence: None)
  Receive Date: 20100830
  Receipt Date: 20100616
  Transmission Date: 20110219
  Serious: No
  Sender: FDA-Public Use
  Company Number: US-ALLERGAN-1007995US

PATIENT
  Sex: Female

DRUGS (2)
  1. SANCTURA XR [Suspect]
     Indication: PRODUCT USED FOR UNKNOWN INDICATION
     Route: 048
  2. UNSPECIFIED MEDICATION FOR BONES [Suspect]

REACTIONS (1)
  - PAIN IN EXTREMITY [None]
